FAERS Safety Report 16655408 (Version 1)
Quarter: 2019Q3

REPORT INFORMATION
  Report Type: Spontaneous
  Country: US (occurrence: US)
  Receive Date: 20190801
  Receipt Date: 20190801
  Transmission Date: 20191004
  Serious: No
  Sender: FDA-Public Use
  Company Number: US-ASTRAZENECA-2019SE96857

PATIENT
  Age: 27125 Day
  Sex: Female
  Weight: 67.6 kg

DRUGS (1)
  1. PULMICORT FLEXHALER [Suspect]
     Active Substance: BUDESONIDE
     Indication: COUGH
     Route: 055
     Dates: start: 20190626

REACTIONS (5)
  - Circumstance or information capable of leading to medication error [Not Recovered/Not Resolved]
  - Product use issue [Not Recovered/Not Resolved]
  - Device malfunction [Unknown]
  - Cough [Not Recovered/Not Resolved]
  - Device failure [Unknown]

NARRATIVE: CASE EVENT DATE: 20190626
